FAERS Safety Report 5017122-7 (Version None)
Quarter: 2006Q2

REPORT INFORMATION
  Report Type: 
  Country: None (occurrence: None)
  Receive Date: 20060525
  Receipt Date: 20060515
  Transmission Date: 20061013
  Serious: Yes (Other)
  Sender: FDA-Public Use
  Company Number: 225143

PATIENT
  Sex: Female

DRUGS (1)
  1. NUTROPIN [Suspect]

REACTIONS (1)
  - THROAT CANCER [None]
